FAERS Safety Report 4687321-2 (Version None)
Quarter: 2005Q2

REPORT INFORMATION
  Report Type: 
  Country: None (occurrence: None)
  Receive Date: 20050609
  Receipt Date: 20050606
  Transmission Date: 20051028
  Serious: Yes (Other)
  Sender: FDA-Public Use
  Company Number: 004937

PATIENT
  Age: 59 Year
  Sex: Female

DRUGS (6)
  1. MEDROXYPROGESTERONE ACETATE [Suspect]
     Dosage: ORAL
     Route: 048
     Dates: start: 19850101, end: 20000101
  2. AYGESTIN [Suspect]
     Dosage: ORAL
     Route: 048
     Dates: start: 19850101, end: 20000101
  3. PROVERA [Suspect]
     Dosage: ORAL
     Route: 048
     Dates: start: 19850101, end: 20000101
  4. MEDROXYPROGESTERONE ACETATE [Suspect]
     Dosage: ORAL
     Route: 048
     Dates: start: 19850101, end: 20000101
  5. PREMARIN [Suspect]
     Dosage: ORAL
     Route: 048
     Dates: start: 19850101, end: 20000101
  6. CYCRIN [Suspect]
     Dosage: ORAL
     Route: 048
     Dates: start: 19850101, end: 20000101

REACTIONS (4)
  - BREAST CANCER FEMALE [None]
  - BREAST CANCER IN SITU [None]
  - OESTROGEN RECEPTOR ASSAY POSITIVE [None]
  - PROGESTERONE RECEPTOR ASSAY POSITIVE [None]
